FAERS Safety Report 10469229 (Version 1)
Quarter: 2014Q3

REPORT INFORMATION
  Report Type: Spontaneous
  Country: US (occurrence: None)
  Receive Date: 20140922
  Receipt Date: 20140922
  Transmission Date: 20150326
  Serious: No
  Sender: FDA-Public Use
  Company Number: None

PATIENT
  Age: 97 Year
  Sex: Female
  Weight: 54.43 kg

DRUGS (13)
  1. PLAVIX [Concomitant]
     Active Substance: CLOPIDOGREL BISULFATE
  2. SOLU-MEDROL [Concomitant]
     Active Substance: METHYLPREDNISOLONE SODIUM SUCCINATE
  3. NORVASC [Concomitant]
     Active Substance: AMLODIPINE BESYLATE
  4. MORPHINE [Concomitant]
     Active Substance: MORPHINE
  5. ZOCOR [Concomitant]
     Active Substance: SIMVASTATIN
  6. ZITHROMAX [Suspect]
     Active Substance: AZITHROMYCIN DIHYDRATE
     Dosage: 500 MG (1 IVPG) QD INTRAVENOUS
     Route: 042
     Dates: start: 20140911, end: 20140913
  7. LASIX [Concomitant]
     Active Substance: FUROSEMIDE
  8. ACYCLOVIR. [Concomitant]
     Active Substance: ACYCLOVIR
  9. COREG [Concomitant]
     Active Substance: CARVEDILOL
  10. FAMOTIDINE. [Concomitant]
     Active Substance: FAMOTIDINE
  11. COLACE [Concomitant]
     Active Substance: DOCUSATE SODIUM
  12. PROTONIX [Concomitant]
     Active Substance: PANTOPRAZOLE SODIUM
  13. BABY ASPIRIN [Concomitant]
     Active Substance: ASPIRIN

REACTIONS (2)
  - Injection site pain [None]
  - Pain [None]

NARRATIVE: CASE EVENT DATE: 20140913
